FAERS Safety Report 6711901-3 (Version None)
Quarter: 2010Q2

REPORT INFORMATION
  Report Type: 
  Country: None (occurrence: None)
  Receive Date: 20100505
  Receipt Date: 20100430
  Transmission Date: 20101027
  Serious: Yes (Life-Threatening, Hospitalization)
  Sender: FDA-Public Use
  Company Number: JP-MERCK-1004USA04801

PATIENT
  Age: 78 Year
  Sex: Male

DRUGS (5)
  1. JANUVIA [Suspect]
     Indication: DIABETES MELLITUS
     Route: 048
     Dates: end: 20100424
  2. AMARYL [Suspect]
     Indication: DIABETES MELLITUS
     Dosage: THE DIVIDED DOSE FREQUENCY IS UNCERTAIN
     Route: 048
  3. ACTOS [Suspect]
     Indication: DIABETES MELLITUS
     Route: 048
  4. PANALDINE [Concomitant]
     Route: 048
  5. ASPIRIN [Concomitant]
     Dosage: THE DIVIDED DOSE FREQUENCY IS UNCERTAIN
     Route: 048

REACTIONS (1)
  - HYPOGLYCAEMIA [None]
